FAERS Safety Report 5585871-8 (Version None)
Quarter: 2007Q4

REPORT INFORMATION
  Report Type: 
  Country: None (occurrence: None)
  Receive Date: 20071205
  Receipt Date: 20070402
  Transmission Date: 20080405
  Serious: Yes (Other)
  Sender: FDA-Public Use
  Company Number: HQWYE490104APR07

PATIENT
  Sex: Female

DRUGS (4)
  1. EFFEXOR XR [Suspect]
     Dosage: 300 MG 1X PER 1 DAY UNKNOWN
     Dates: start: 20040116
  2. WELLBUTRIN [Concomitant]
  3. PROVIGIL [Concomitant]
  4. ALPRAZOLAM [Concomitant]

REACTIONS (1)
  - CONVULSION [None]
